FAERS Safety Report 7424703-X (Version None)
Quarter: 2011Q2

REPORT INFORMATION
  Report Type: 
  Country: None (occurrence: None)
  Receive Date: 20110419
  Receipt Date: 20110413
  Transmission Date: 20111010
  Serious: Yes (Hospitalization)
  Sender: FDA-Public Use
  Company Number: GB-AMGEN-UK271852

PATIENT
  Age: 67 Year
  Sex: Male
  Weight: 66.3 kg

DRUGS (2)
  1. PANITUMUMAB [Suspect]
     Indication: COLORECTAL CANCER
     Dosage: UNK UNK, UNK
     Route: 042
     Dates: start: 20071122
  2. IRINOTECAN [Concomitant]
     Dosage: UNK UNK, UNK
     Route: 042
     Dates: start: 20071122

REACTIONS (3)
  - DEHYDRATION [None]
  - CACHEXIA [None]
  - DIARRHOEA [None]
